FAERS Safety Report 25771216 (Version 1)
Quarter: 2025Q3

REPORT INFORMATION
  Report Type: Spontaneous
  Country: US (occurrence: US)
  Receive Date: 20250908
  Receipt Date: 20250908
  Transmission Date: 20251021
  Serious: No
  Sender: DOMPE FARMACEUTICI
  Company Number: US-FARMAPROD-202504-1120

PATIENT
  Sex: Male

DRUGS (6)
  1. OXERVATE [Suspect]
     Active Substance: CENEGERMIN-BKBJ
     Indication: Neurotrophic keratopathy
     Route: 047
     Dates: start: 20250319
  2. PROTONIX [Concomitant]
     Active Substance: PANTOPRAZOLE SODIUM
  3. CLEAR EYES COMPLETE [Concomitant]
     Active Substance: HYPROMELLOSE 2906 (4000 MPA.S)\NAPHAZOLINE HYDROCHLORIDE\POLYSORBATE 80\ZINC SULFATE HEPTAHYDRATE
  4. ASPIRIN [Concomitant]
     Active Substance: ASPIRIN
  5. LOSARTAN POTASSIUM [Concomitant]
     Active Substance: LOSARTAN POTASSIUM
  6. GABAPENTIN [Concomitant]
     Active Substance: GABAPENTIN

REACTIONS (3)
  - Ocular hyperaemia [Unknown]
  - Eye pain [Unknown]
  - Swelling of eyelid [Unknown]
